FAERS Safety Report 6564736-9 (Version None)
Quarter: 2010Q1

REPORT INFORMATION
  Report Type: 
  Country: None (occurrence: None)
  Receive Date: 20100201
  Receipt Date: 20100121
  Transmission Date: 20100710
  Serious: Yes (Death, Life-Threatening, Hospitalization)
  Sender: FDA-Public Use
  Company Number: GR-BAYER-200926630GPV

PATIENT
  Age: 62 Year
  Sex: Male
  Weight: 100 kg

DRUGS (9)
  1. NEXAVAR [Suspect]
     Indication: HEPATIC NEOPLASM MALIGNANT
     Route: 048
     Dates: start: 20090612, end: 20090707
  2. NEXAVAR [Suspect]
     Route: 048
     Dates: start: 20090708, end: 20090708
  3. DEPAKENE [Concomitant]
     Indication: MENTAL DISORDER
     Route: 048
  4. ALOPERIDIN [Concomitant]
     Indication: MENTAL DISORDER
     Route: 030
  5. LONALGAL [Concomitant]
     Indication: PAIN
     Route: 048
     Dates: start: 20090504
  6. VIREAD [Concomitant]
     Indication: HEPATITIS B POSITIVE
     Route: 048
     Dates: start: 20090521, end: 20090624
  7. LIPITOR [Concomitant]
     Indication: HYPERLIPIDAEMIA
     Route: 048
     Dates: start: 20090521, end: 20090624
  8. PARAFFIN OIL [Concomitant]
     Indication: CONSTIPATION
     Route: 048
     Dates: start: 20090521, end: 20090615
  9. LERCARDIL [Concomitant]
     Indication: HYPERTENSION
     Route: 048
     Dates: end: 20090707

REACTIONS (5)
  - ASCITES [None]
  - DEATH [None]
  - ENCEPHALOPATHY [None]
  - HEPATIC FAILURE [None]
  - JAUNDICE [None]
